FAERS Safety Report 9612497 (Version 3)
Quarter: 2014Q1

REPORT INFORMATION
  Report Type: Report from Study
  Country: US (occurrence: US)
  Receive Date: 20131010
  Receipt Date: 20140129
  Transmission Date: 20141002
  Serious: Yes (Hospitalization)
  Sender: FDA-Public Use
  Company Number: US-SA-2013SA097959

PATIENT
  Age: 62 Year
  Sex: Male

DRUGS (3)
  1. AUBAGIO [Suspect]
     Indication: MULTIPLE SCLEROSIS
     Route: 048
     Dates: start: 20130429
  2. AUBAGIO [Suspect]
     Indication: MULTIPLE SCLEROSIS
     Dosage: TAKEN TO :MONTH AND HALF AGO
     Route: 065
     Dates: start: 20130528
  3. AUBAGIO [Suspect]
     Indication: MULTIPLE SCLEROSIS
     Route: 065
     Dates: start: 20090105

REACTIONS (4)
  - Pulmonary embolism [Recovering/Resolving]
  - Fall [Recovering/Resolving]
  - Multiple sclerosis relapse [Not Recovered/Not Resolved]
  - Breath odour [Unknown]
